FAERS Safety Report 8958168 (Version 2)
Quarter: 2013Q1

REPORT INFORMATION
  Report Type: Report from Study
  Country: JP (occurrence: JP)
  Receive Date: 20121211
  Receipt Date: 20130130
  Transmission Date: 20140127
  Serious: Yes (Life-Threatening, Hospitalization)
  Sender: FDA-Public Use
  Company Number: JP-AMGEN-JPNCT2012078983

PATIENT
  Age: 72 Year
  Sex: Female
  Weight: 56 kg

DRUGS (38)
  1. DARBEPOETIN ALFA [Suspect]
     Indication: NEPHROGENIC ANAEMIA
     Dosage: 30 MUG, QD
     Route: 040
     Dates: start: 20110706, end: 20110714
  2. DARBEPOETIN ALFA [Suspect]
     Dosage: 60 MUG, QD
     Route: 040
     Dates: start: 20110803, end: 20110803
  3. DARBEPOETIN ALFA [Suspect]
     Dosage: 60 MUG, QD
     Route: 058
     Dates: start: 20110831, end: 20110831
  4. DARBEPOETIN ALFA [Suspect]
     Dosage: 60 MUG, QD
     Route: 040
     Dates: start: 20110913, end: 20110913
  5. DARBEPOETIN ALFA [Suspect]
     Dosage: 60 MUG, QD
     Route: 058
     Dates: start: 20110928, end: 20110928
  6. DARBEPOETIN ALFA [Suspect]
     Dosage: 60 MUG, QD
     Route: 040
     Dates: start: 20111011, end: 20111011
  7. DARBEPOETIN ALFA [Suspect]
     Dosage: 60 MUG, QD
     Route: 058
     Dates: start: 20111026, end: 20111026
  8. DARBEPOETIN ALFA [Suspect]
     Dosage: 60 MUG, QD
     Route: 040
     Dates: start: 20111108, end: 20111108
  9. DARBEPOETIN ALFA [Suspect]
     Dosage: 60 MUG, Q2WK
     Route: 058
     Dates: start: 20111116, end: 20111130
  10. DARBEPOETIN ALFA [Suspect]
     Dosage: 60 MUG, QD
     Route: 040
     Dates: start: 20111214, end: 20111214
  11. DARBEPOETIN ALFA [Suspect]
     Dosage: 60 MUG, QD
     Route: 058
     Dates: start: 20111228, end: 20111228
  12. DARBEPOETIN ALFA [Suspect]
     Dosage: 120 MUG, QD
     Route: 040
     Dates: start: 20120111, end: 20120111
  13. DARBEPOETIN ALFA [Suspect]
     Dosage: 60 MUG, Q4WK
     Route: 040
     Dates: start: 20120222, end: 20120321
  14. DARBEPOETIN ALFA [Suspect]
     Dosage: 60 MUG, Q2WK
     Route: 058
     Dates: start: 20120404, end: 20120418
  15. DARBEPOETIN ALFA [Suspect]
     Dosage: 60 MUG, QD
     Route: 040
     Dates: start: 20120502, end: 20120502
  16. DARBEPOETIN ALFA [Suspect]
     Dosage: 60 MUG, QD
     Route: 040
     Dates: start: 20120516, end: 20120516
  17. DARBEPOETIN ALFA [Suspect]
     Dosage: 60 MUG, Q2WK
     Route: 040
     Dates: start: 20120530, end: 20120613
  18. DARBEPOETIN ALFA [Suspect]
     Dosage: 60 MUG, QD
     Route: 058
     Dates: start: 20120627
  19. LENDORMIN [Suspect]
     Dosage: UNK
     Route: 048
  20. MICOMBI COMBINATION [Concomitant]
     Dosage: UNK
     Route: 048
  21. CALBLOCK [Concomitant]
     Dosage: UNK
     Route: 048
  22. ARTIST [Concomitant]
     Dosage: UNK
     Route: 048
  23. CARDENALIN [Concomitant]
     Dosage: UNK
     Route: 048
  24. PARIET [Concomitant]
     Dosage: UNK
     Route: 048
  25. MYSLEE [Concomitant]
     Dosage: UNK
     Route: 048
  26. CRESTOR [Concomitant]
     Dosage: UNK
     Route: 048
  27. PROMAC [Concomitant]
     Dosage: UNK
     Route: 048
  28. UNSPECIFIED HERBAL [Concomitant]
     Dosage: UNK
     Route: 048
  29. LAXOBERON [Concomitant]
     Dosage: UNK
     Route: 048
  30. CONIEL [Concomitant]
     Dosage: UNK
     Route: 048
  31. RIZABEN [Concomitant]
     Dosage: UNK
     Route: 047
  32. DEPAS [Concomitant]
     Dosage: UNK
     Route: 048
  33. ALESION [Concomitant]
     Dosage: UNK
     Route: 048
  34. IDOMETHINE [Concomitant]
     Dosage: UNK
     Route: 062
  35. MOHRUS [Concomitant]
     Dosage: UNK
     Route: 062
  36. ALOSENN [Concomitant]
     Dosage: UNK
     Route: 048
  37. PRODEC [Concomitant]
     Dosage: UNK
     Route: 048
  38. ALDOMET [Concomitant]
     Dosage: UNK
     Route: 048

REACTIONS (13)
  - Hypoalbuminaemia [Not Recovered/Not Resolved]
  - Oedema [Not Recovered/Not Resolved]
  - Lung neoplasm malignant [Recovering/Resolving]
  - Insomnia [Unknown]
  - Drug eruption [Unknown]
  - Pruritus generalised [Recovering/Resolving]
  - Spinal column stenosis [Not Recovered/Not Resolved]
  - Eczema [Recovering/Resolving]
  - Cystitis [Recovering/Resolving]
  - Haemorrhoids [Recovering/Resolving]
  - Nasopharyngitis [Recovering/Resolving]
  - Nasopharyngitis [Recovered/Resolved]
  - Nasopharyngitis [Recovered/Resolved]
